FAERS Safety Report 8260092-9 (Version None)
Quarter: 2012Q2

REPORT INFORMATION
  Report Type: 
  Country: None (occurrence: None)
  Receive Date: 20120404
  Receipt Date: 20120330
  Transmission Date: 20120825
  Serious: Yes (Other)
  Sender: FDA-Public Use
  Company Number: US-PFIZER INC-2012068493

PATIENT
  Age: 85 Year
  Sex: Female
  Weight: 49.887 kg

DRUGS (2)
  1. LYRICA [Suspect]
     Indication: HYPOAESTHESIA
     Dosage: 50 MG, UNK
     Route: 048
     Dates: start: 20120314, end: 20120101
  2. LYRICA [Suspect]
     Indication: NEUROPATHY PERIPHERAL
     Dosage: 50 MG, 1X/DAY
     Route: 048
     Dates: start: 20120314, end: 20120315

REACTIONS (7)
  - PAIN IN EXTREMITY [None]
  - HYPOAESTHESIA [None]
  - BURNING SENSATION [None]
  - NERVE COMPRESSION [None]
  - DYSKINESIA [None]
  - PAIN [None]
  - DRUG HYPERSENSITIVITY [None]
